FAERS Safety Report 5196365-6 (Version None)
Quarter: 2006Q4

REPORT INFORMATION
  Report Type: 
  Country: None (occurrence: None)
  Receive Date: 20061222
  Receipt Date: 20061208
  Transmission Date: 20070319
  Serious: Yes (Other)
  Sender: FDA-Public Use
  Company Number: 2006BI017923

PATIENT
  Sex: Male

DRUGS (1)
  1. AVONEX [Suspect]
     Indication: MULTIPLE SCLEROSIS
     Dosage: 30 UG; QW;
     Dates: end: 20061101

REACTIONS (7)
  - FOETAL DISTRESS SYNDROME [None]
  - FOETAL MALPRESENTATION [None]
  - FORCEPS DELIVERY [None]
  - POSTMATURE BABY [None]
  - TRANSMISSION OF DRUG VIA SEMEN [None]
  - UMBILICAL CORD ABNORMALITY [None]
  - UMBILICAL CORD AROUND NECK [None]
